FAERS Safety Report 20165047 (Version 2)
Quarter: 2021Q4

REPORT INFORMATION
  Report Type: Spontaneous
  Country: US (occurrence: US)
  Receive Date: 20211209
  Receipt Date: 20211221
  Transmission Date: 20220303
  Serious: No
  Sender: FDA-Public Use
  Company Number: US-BEH-2021139232

PATIENT
  Sex: Female

DRUGS (1)
  1. HIZENTRA [Suspect]
     Active Substance: HUMAN IMMUNOGLOBULIN G
     Indication: Cyclic neutropenia
     Dosage: 20 GRAM, QW
     Route: 058
     Dates: start: 202110

REACTIONS (3)
  - Weight fluctuation [Unknown]
  - No adverse event [Unknown]
  - Off label use [Unknown]
